FAERS Safety Report 4938607-5 (Version None)
Quarter: 2006Q1

REPORT INFORMATION
  Report Type: 
  Country: None (occurrence: None)
  Receive Date: 20060306
  Receipt Date: 20060217
  Transmission Date: 20060701
  Serious: Yes (Hospitalization)
  Sender: FDA-Public Use
  Company Number: US200601002155

PATIENT
  Age: 75 Year
  Sex: Female

DRUGS (6)
  1. FORTEO [Suspect]
     Indication: OSTEOPOROSIS
     Dosage: 20 U, DAILY (1/D)
     Dates: start: 20040527
  2. FORTEO PEN (FORTEO PEN) PEN, DISPOSABLE [Concomitant]
  3. VASOTEC [Concomitant]
  4. SYNTHROID [Concomitant]
  5. IMURAN [Concomitant]
  6. PRILOSEC [Concomitant]

REACTIONS (3)
  - ATRIOVENTRICULAR BLOCK [None]
  - LUMBAR SPINAL STENOSIS [None]
  - PHARMACEUTICAL PRODUCT COMPLAINT [None]
